FAERS Safety Report 10859426 (Version 2)
Quarter: 2015Q1

REPORT INFORMATION
  Report Type: Spontaneous
  Country: FR (occurrence: FR)
  Receive Date: 20150223
  Receipt Date: 20150306
  Transmission Date: 20150721
  Serious: Yes (Life-Threatening, Hospitalization)
  Sender: FDA-Public Use
  Company Number: FR-ROCHE-1541138

PATIENT
  Age: 44 Year
  Sex: Female

DRUGS (8)
  1. TARKA [Suspect]
     Active Substance: TRANDOLAPRIL\VERAPAMIL HYDROCHLORIDE
     Indication: PRODUCT USED FOR UNKNOWN INDICATION
     Dosage: 2520 MG OF VERAPAMIL + 28 MG OF TRANDOLAPRIL
     Route: 048
     Dates: start: 20150114, end: 20150114
  2. VALIUM [Suspect]
     Active Substance: DIAZEPAM
     Indication: SUICIDE ATTEMPT
     Dosage: 20 TABLETS OF 5 MG
     Route: 048
     Dates: start: 20140114, end: 20150114
  3. DEPAKOTE [Suspect]
     Active Substance: DIVALPROEX SODIUM
     Indication: PRODUCT USED FOR UNKNOWN INDICATION
     Dosage: 15 TABLETS OF 250 MG
     Route: 048
     Dates: start: 20150114, end: 20150114
  4. SEROPLEX [Concomitant]
     Active Substance: ESCITALOPRAM OXALATE
     Route: 048
  5. VALIUM [Suspect]
     Active Substance: DIAZEPAM
     Indication: INTENTIONAL OVERDOSE
  6. AERIUS (FRANCE) [Concomitant]
     Route: 048
  7. VENTOLINE [Concomitant]
     Active Substance: ALBUTEROL
  8. THERALENE (FRANCE) [Concomitant]
     Active Substance: TRIMEPRAZINE
     Dosage: ONE DROP
     Route: 048

REACTIONS (7)
  - Bradycardia [Recovered/Resolved]
  - Overdose [Unknown]
  - Hypotension [Recovered/Resolved]
  - Metabolic acidosis [Recovered/Resolved]
  - Electrocardiogram QT prolonged [Recovered/Resolved]
  - Coma [Recovered/Resolved]
  - Atrioventricular block complete [Recovered/Resolved]

NARRATIVE: CASE EVENT DATE: 20150114
